FAERS Safety Report 23654474 (Version 1)
Quarter: 2024Q1

REPORT INFORMATION
  Report Type: Spontaneous
  Country: US (occurrence: None)
  Receive Date: 20240319
  Receipt Date: 20240319
  Transmission Date: 20240410
  Serious: Yes (Other)
  Sender: FDA-Public Use
  Company Number: None

PATIENT
  Age: 63 Year
  Sex: Male
  Weight: 99 kg

DRUGS (8)
  1. SILDENAFIL [Suspect]
     Active Substance: SILDENAFIL
     Indication: Erectile dysfunction
     Dosage: OTHER QUANTITY : 8 TABLET(S);?FREQUENCY : AS NEEDED;?
     Route: 048
     Dates: start: 20240310, end: 20240310
  2. SYNTHROID [Concomitant]
     Active Substance: LEVOTHYROXINE SODIUM
  3. ALLOPURINOL [Concomitant]
     Active Substance: ALLOPURINOL
  4. LISINOPRIL [Concomitant]
     Active Substance: LISINOPRIL
  5. Creator Climax Timolol [Concomitant]
  6. Multi +Omega [Concomitant]
  7. FOLIC ACID [Concomitant]
     Active Substance: FOLIC ACID
  8. ASPIRIN [Concomitant]
     Active Substance: ASPIRIN

REACTIONS (1)
  - Seizure [None]

NARRATIVE: CASE EVENT DATE: 20240311
